FAERS Safety Report 6843529-9 (Version None)
Quarter: 2010Q3

REPORT INFORMATION
  Report Type: 
  Country: None (occurrence: None)
  Receive Date: 20100712
  Receipt Date: 20100628
  Transmission Date: 20110219
  Serious: Yes (Other)
  Sender: FDA-Public Use
  Company Number: UK-ACCORD-002571

PATIENT
  Age: 68 Year
  Sex: Female
  Weight: 90 kg

DRUGS (5)
  1. SIMVASTATIN [Suspect]
     Indication: PRODUCT USED FOR UNKNOWN INDICATION
     Dosage: 10.00-MG- / ORAL
     Route: 048
     Dates: start: 20060301, end: 20080829
  2. ROSUVASTATIN [Suspect]
     Indication: PRODUCT USED FOR UNKNOWN INDICATION
     Dosage: 5.00-MG- / ORAL
     Route: 048
     Dates: start: 20081128, end: 20081202
  3. ASPIRIN [Concomitant]
  4. BENDROFLUMETHIAZIDE(BENDROFLUMETHIAZIDE) [Concomitant]
  5. LISINOPRIL [Concomitant]

REACTIONS (2)
  - COUGH [None]
  - TACHYCARDIA [None]
